FAERS Safety Report 24186605 (Version 4)
Quarter: 2025Q3

REPORT INFORMATION
  Report Type: Spontaneous
  Country: BR (occurrence: BR)
  Receive Date: 20240808
  Receipt Date: 20250903
  Transmission Date: 20251020
  Serious: Yes (Other)
  Sender: SANDOZ
  Company Number: BR-002147023-NVSC2024BR065357

PATIENT
  Sex: Female

DRUGS (9)
  1. ANASTROZOLE [Suspect]
     Active Substance: ANASTROZOLE
     Indication: Product used for unknown indication
     Route: 065
  2. EVEROLIMUS [Suspect]
     Active Substance: EVEROLIMUS
     Indication: Product used for unknown indication
     Route: 065
  3. KISQALI [Suspect]
     Active Substance: RIBOCICLIB SUCCINATE
     Route: 065
  4. KISQALI [Suspect]
     Active Substance: RIBOCICLIB SUCCINATE
     Route: 065
  5. KISQALI [Suspect]
     Active Substance: RIBOCICLIB SUCCINATE
     Route: 065
     Dates: start: 20240731
  6. KISQALI [Suspect]
     Active Substance: RIBOCICLIB SUCCINATE
     Indication: Product used for unknown indication
     Dosage: 3 DF, QD
     Route: 065
     Dates: start: 20240302
  7. LETROZOLE [Suspect]
     Active Substance: LETROZOLE
     Indication: Product used for unknown indication
     Route: 065
  8. ALGINIC ACID [Concomitant]
     Active Substance: ALGINIC ACID
     Indication: Product used for unknown indication
     Route: 065
  9. TAMOXIFEN [Concomitant]
     Active Substance: TAMOXIFEN
     Indication: Product used for unknown indication
     Route: 065

REACTIONS (30)
  - Metastases to central nervous system [Unknown]
  - Metastases to liver [Unknown]
  - Metastases to bone [Unknown]
  - Metastases to lung [Unknown]
  - Necrosis [Unknown]
  - Decreased immune responsiveness [Unknown]
  - Dengue fever [Unknown]
  - Platelet count decreased [Unknown]
  - Mood swings [Unknown]
  - Mobility decreased [Unknown]
  - Irritability [Unknown]
  - Crying [Unknown]
  - Gait disturbance [Unknown]
  - Movement disorder [Unknown]
  - Lung disorder [Unknown]
  - Tumour marker increased [Not Recovered/Not Resolved]
  - Tumour marker abnormal [Recovered/Resolved]
  - Wound complication [Recovering/Resolving]
  - Wound [Recovering/Resolving]
  - Carbohydrate antigen 15-3 increased [Not Recovered/Not Resolved]
  - Laboratory test abnormal [Unknown]
  - Feeling abnormal [Unknown]
  - Positron emission tomogram abnormal [Not Recovered/Not Resolved]
  - Computerised tomogram abnormal [Not Recovered/Not Resolved]
  - Disease progression [Not Recovered/Not Resolved]
  - Nervousness [Unknown]
  - Pain [Unknown]
  - Fatigue [Unknown]
  - Head discomfort [Unknown]
  - Drug ineffective [Unknown]
